FAERS Safety Report 20169488 (Version 1)
Quarter: 2021Q4

REPORT INFORMATION
  Report Type: Report from Study
  Country: KR (occurrence: KR)
  Receive Date: 20211210
  Receipt Date: 20211210
  Transmission Date: 20220303
  Serious: Yes (Hospitalization, Other)
  Sender: FDA-Public Use
  Company Number: KR-GLAXOSMITHKLINE-KR2021GSK249599

PATIENT
  Age: 31 Year
  Sex: Female
  Weight: 63 kg

DRUGS (13)
  1. BELIMUMAB [Suspect]
     Active Substance: BELIMUMAB
     Indication: Systemic lupus erythematosus
     Dosage: 600
     Route: 042
     Dates: start: 20211008
  2. BELIMUMAB [Suspect]
     Active Substance: BELIMUMAB
     Dosage: 600
     Route: 042
     Dates: start: 20211022
  3. BELIMUMAB [Suspect]
     Active Substance: BELIMUMAB
     Dosage: 600
     Route: 042
     Dates: start: 20211105
  4. BELIMUMAB [Suspect]
     Active Substance: BELIMUMAB
     Dosage: 600
     Route: 042
     Dates: start: 20211203
  5. METHYSOL [Concomitant]
     Dosage: 8 TOTAL 66 DAYS, QD
     Route: 048
     Dates: start: 20210917, end: 20211122
  6. METHYSOL [Concomitant]
     Dosage: 62.5 MG
     Route: 042
     Dates: start: 20211123, end: 20211125
  7. ANAPROX [Concomitant]
     Active Substance: NAPROXEN SODIUM
     Dosage: 275 TOTAL 161 DAYS, QD
     Route: 048
     Dates: start: 20210625, end: 20211203
  8. HYDROXYCHLOROQUINE SULFATE [Concomitant]
     Active Substance: HYDROXYCHLOROQUINE SULFATE
     Dosage: 100 TOTAL 0 DAYS, QD
     Route: 048
     Dates: start: 20210702
  9. HYDROXYCHLOROQUINE SULFATE [Concomitant]
     Active Substance: HYDROXYCHLOROQUINE SULFATE
     Dosage: 200 TOTAL 0 DAYS, QD
     Route: 048
     Dates: start: 20210702
  10. METHOTREXATE [Concomitant]
     Active Substance: METHOTREXATE
     Dosage: 10 TOTAL 145 DAYS, QD
     Route: 048
     Dates: start: 20210702, end: 20211124
  11. FEROBA-YOU SR [Concomitant]
     Indication: Iron deficiency anaemia
     Dosage: 256 TOTAL 0 DAYS, QD
     Route: 048
     Dates: start: 20210721
  12. K-CAB [Concomitant]
     Dosage: 1 TOTAL 0 DAYS), QD
     Route: 048
     Dates: start: 20210625
  13. FOLIC ACID [Concomitant]
     Active Substance: FOLIC ACID
     Indication: Folate deficiency
     Dosage: 1 TOTAL 0 DAYS, QD
     Route: 048
     Dates: start: 20210625

REACTIONS (1)
  - Systemic lupus erythematosus [Recovered/Resolved]

NARRATIVE: CASE EVENT DATE: 20211120
